FAERS Safety Report 4432876-6 (Version None)
Quarter: 2004Q3

REPORT INFORMATION
  Report Type: 
  Country: None (occurrence: None)
  Receive Date: 20040823
  Receipt Date: 20040810
  Transmission Date: 20050211
  Serious: Yes (Hospitalization)
  Sender: FDA-Public Use
  Company Number: CIP04001760

PATIENT
  Age: 74 Year
  Sex: Female

DRUGS (6)
  1. MACRODANTIN [Suspect]
     Dosage: 50 MG DAILY, ORAL
     Route: 048
     Dates: start: 19980101, end: 20020224
  2. QUININE (QUININE) [Suspect]
     Indication: PAIN IN EXTREMITY
     Dosage: 300 MG ONE TIME
     Dates: start: 20020223
  3. CHLORTHALIDONE [Concomitant]
  4. CARTIA     /AUS/  (ACETYLSALICYLIC ACID) [Concomitant]
  5. CARDIZEM CD [Concomitant]
  6. ALPHAPRESS (HYDRALAZINE HYDROCHLORIDE) [Concomitant]

REACTIONS (6)
  - CHEST PAIN [None]
  - HEADACHE [None]
  - NAUSEA [None]
  - PALPITATIONS [None]
  - PARAESTHESIA [None]
  - PRURITUS [None]
